FAERS Safety Report 8761344 (Version 1)
Quarter: 2012Q4

REPORT INFORMATION
  Report Type: 
  Country: US (occurrence: US)
  Receive Date: 20120830
  Receipt Date: 20120830
  Transmission Date: 20130627
  Serious: Yes (Other)
  Sender: FDA-Public Use
  Company Number: US-ASTRAZENECA-2012SE64627

PATIENT
  Age: 48 Year
  Sex: Female
  Weight: 77.1 kg

DRUGS (3)
  1. SEROQUEL [Suspect]
     Indication: BIPOLAR DISORDER
     Route: 048
  2. BACLOFEN [Concomitant]
  3. INDOMETHACIN [Concomitant]
     Route: 048

REACTIONS (2)
  - Rotator cuff syndrome [Unknown]
  - Intentional drug misuse [Unknown]
